FAERS Safety Report 9224974 (Version 1)
Quarter: 2013Q2

REPORT INFORMATION
  Report Type: Spontaneous
  Country: JP (occurrence: JP)
  Receive Date: 20130411
  Receipt Date: 20130411
  Transmission Date: 20140414
  Serious: Yes (Other)
  Sender: FDA-Public Use
  Company Number: JP-PFIZER INC-2013110031

PATIENT
  Sex: Male

DRUGS (1)
  1. GENOTROPIN TC [Suspect]
     Route: 058

REACTIONS (2)
  - Enterocolitis [Unknown]
  - Pyrexia [Unknown]
